FAERS Safety Report 12408791 (Version 1)
Quarter: 2016Q2

REPORT INFORMATION
  Report Type: Spontaneous
  Country: NO (occurrence: NO)
  Receive Date: 20160526
  Receipt Date: 20160526
  Transmission Date: 20160815
  Serious: Yes (Life-Threatening, Other)
  Sender: FDA-Public Use
  Company Number: NO-PFIZER INC-2016273717

PATIENT
  Age: 29 Year
  Sex: Male
  Weight: 87 kg

DRUGS (5)
  1. VITAMIN A [Concomitant]
     Active Substance: VITAMIN A
     Dosage: 8000 IU, 1X/DAY
  2. TRUXAL [Suspect]
     Active Substance: CHLORPROTHIXENE
     Indication: ANXIETY
     Dosage: 50 MG MORNING AND 150 MG EVENING
  3. ZELDOX [Suspect]
     Active Substance: ZIPRASIDONE
     Indication: SCHIZOPHRENIA
     Dosage: 80 MG, 2X/DAY
     Dates: start: 20120102
  4. TRUXAL [Suspect]
     Active Substance: CHLORPROTHIXENE
     Indication: STRESS
     Dosage: 50 MG MORNING AND 75 MG EVENING
     Dates: start: 20120201
  5. VITAMIN D [Concomitant]
     Active Substance: CHOLECALCIFEROL
     Dosage: 2000 IU, 2X/DAY

REACTIONS (3)
  - Visual impairment [Not Recovered/Not Resolved]
  - Visual acuity reduced [Not Recovered/Not Resolved]
  - Vitreous haemorrhage [Unknown]

NARRATIVE: CASE EVENT DATE: 20160320
